FAERS Safety Report 7075622-2 (Version None)
Quarter: 2010Q4

REPORT INFORMATION
  Report Type: 
  Country: None (occurrence: None)
  Receive Date: 20101030
  Receipt Date: 20101014
  Transmission Date: 20110411
  Serious: No
  Sender: FDA-Public Use
  Company Number: US-WYE-H18211110

PATIENT
  Age: 65 Year
  Sex: Female
  Weight: 54.48 kg

DRUGS (4)
  1. ALAVERT [Suspect]
     Indication: RHINORRHOEA
     Route: 048
     Dates: start: 20101013, end: 20101013
  2. ALAVERT [Suspect]
     Indication: SNEEZING
  3. ZOCOR [Concomitant]
  4. DIOVAN [Concomitant]

REACTIONS (1)
  - DRUG INEFFECTIVE [None]
